FAERS Safety Report 9641994 (Version 1)
Quarter: 2013Q4

REPORT INFORMATION
  Report Type: Spontaneous
  Country: US (occurrence: None)
  Receive Date: 20131022
  Receipt Date: 20131022
  Transmission Date: 20140711
  Serious: Yes (Hospitalization, Other)
  Sender: FDA-Public Use
  Company Number: SYM-2013-11590

PATIENT
  Age: 51 Year
  Sex: Female
  Weight: 72.58 kg

DRUGS (7)
  1. MYSOLINE (PRIMIDONE) [Suspect]
     Indication: PRODUCT USED FOR UNKNOWN INDICATION
     Dates: start: 1967, end: 1982
  2. DEPAKOTE [Suspect]
     Indication: PRODUCT USED FOR UNKNOWN INDICATION
     Dates: start: 1998, end: 1998
  3. DILANTIN [Suspect]
     Indication: EPILEPSY
     Dates: start: 19650731, end: 1967
  4. DILANTIN [Suspect]
     Indication: EPILEPSY
  5. PHENYTOIN (PHENYTOIN) [Suspect]
     Indication: EPILEPSY
  6. PHENOBARBITAL (PHENOBARBITAL) [Suspect]
     Indication: EPILEPSY
     Dates: start: 19650731
  7. ANTI HALLUCINOGENIC DRUG (OTHER THERAPEUTIC PRODUCTS) (NULL) [Suspect]
     Indication: PRODUCT USED FOR UNKNOWN INDICATION

REACTIONS (9)
  - Loss of consciousness [None]
  - Coma [None]
  - Gait disturbance [None]
  - Hypoaesthesia [None]
  - Fatigue [None]
  - Fall [None]
  - Spinal fracture [None]
  - Fracture [None]
  - Hallucination [None]
